FAERS Safety Report 22969358 (Version 2)
Quarter: 2023Q4

REPORT INFORMATION
  Report Type: Spontaneous
  Country: US (occurrence: US)
  Receive Date: 20230922
  Receipt Date: 20231026
  Transmission Date: 20240110
  Serious: No
  Sender: FDA-Public Use
  Company Number: US-BRISTOL-MYERS SQUIBB COMPANY-2023-134690

PATIENT
  Age: 54 Year
  Sex: Male

DRUGS (4)
  1. ZEPOSIA [Suspect]
     Active Substance: OZANIMOD HYDROCHLORIDE
     Indication: Product used for unknown indication
     Route: 048
  2. BUSPAR [Concomitant]
     Active Substance: BUSPIRONE HYDROCHLORIDE
     Indication: Product used for unknown indication
     Route: 048
  3. NARCO [Concomitant]
     Indication: Pain
     Dosage: 5-325 MILLIGRAM
     Route: 048
  4. XANAX [Concomitant]
     Active Substance: ALPRAZOLAM
     Indication: Pain
     Dosage: 5-325 MILLIGRAM
     Route: 048

REACTIONS (11)
  - Faeces pale [Unknown]
  - Decreased appetite [Unknown]
  - Amnesia [Unknown]
  - Fatigue [Unknown]
  - Balance disorder [Unknown]
  - Vision blurred [Unknown]
  - Initial insomnia [Unknown]
  - Tremor [Unknown]
  - COVID-19 [Unknown]
  - Weight decreased [Unknown]
  - Decreased appetite [Unknown]
